FAERS Safety Report 6993364-6 (Version None)
Quarter: 2010Q3

REPORT INFORMATION
  Report Type: 
  Country: None (occurrence: None)
  Receive Date: 20100917
  Receipt Date: 20091123
  Transmission Date: 20110219
  Serious: Yes (Other)
  Sender: FDA-Public Use
  Company Number: US-ASTRAZENECA-2009UW08295

PATIENT
  Age: 51 Year
  Sex: Male
  Weight: 104.3 kg

DRUGS (8)
  1. SEROQUEL [Suspect]
     Indication: SCHIZOPHRENIA
     Route: 048
     Dates: start: 20030707, end: 20070205
  2. SEROQUEL [Suspect]
     Indication: DEPRESSION
     Route: 048
     Dates: start: 20030707, end: 20070205
  3. SEROQUEL [Suspect]
     Indication: FLASHBACK
     Route: 048
     Dates: start: 20030707, end: 20070205
  4. SEROQUEL [Suspect]
     Indication: SLEEP DISORDER
     Route: 048
     Dates: start: 20030707, end: 20070205
  5. HALDOL [Concomitant]
     Dates: start: 19870101
  6. RISPERDAL [Concomitant]
     Dates: start: 20030101, end: 20090101
  7. THORAZINE [Concomitant]
     Dates: start: 19870101
  8. PROZAC [Concomitant]
     Dates: start: 20020101, end: 20090101

REACTIONS (9)
  - ASTHMA [None]
  - BLOOD CHOLESTEROL INCREASED [None]
  - CATARACT [None]
  - DIABETIC COMA [None]
  - DIABETIC KETOACIDOSIS [None]
  - OBESITY [None]
  - OEDEMA PERIPHERAL [None]
  - TYPE 1 DIABETES MELLITUS [None]
  - TYPE 2 DIABETES MELLITUS [None]
